FAERS Safety Report 4824157-3 (Version None)
Quarter: 2005Q4

REPORT INFORMATION
  Report Type: 
  Country: None (occurrence: None)
  Receive Date: 20051108
  Receipt Date: 20051031
  Transmission Date: 20060501
  Serious: Yes (Hospitalization, Other)
  Sender: FDA-Public Use
  Company Number: 200513576BCC

PATIENT
  Age: 53 Year
  Sex: Male
  Weight: 122.4712 kg

DRUGS (7)
  1. ASPIRIN [Suspect]
     Indication: MYOCARDIAL INFARCTION
     Dosage: SEE IMAGE
     Route: 048
     Dates: start: 20050825
  2. ASPIRIN [Suspect]
     Indication: PROPHYLAXIS
     Dosage: SEE IMAGE
     Route: 048
     Dates: start: 20050825
  3. VYTORIN [Concomitant]
  4. COREG [Concomitant]
  5. NITROGLYCERIN [Concomitant]
  6. PLAVIX [Concomitant]
  7. ALTACE [Concomitant]

REACTIONS (1)
  - MYOCARDIAL INFARCTION [None]
